FAERS Safety Report 7672395-7 (Version None)
Quarter: 2011Q3

REPORT INFORMATION
  Report Type: 
  Country: None (occurrence: None)
  Receive Date: 20110809
  Receipt Date: 20110729
  Transmission Date: 20111222
  Serious: Yes (Life-Threatening, Hospitalization)
  Sender: FDA-Public Use
  Company Number: JP-JNJFOC-20110701438

PATIENT
  Sex: Male
  Weight: 66 kg

DRUGS (10)
  1. NIZATIDINE [Concomitant]
     Indication: CROHN'S DISEASE
     Route: 048
  2. ZOLPIDEM [Concomitant]
     Indication: INSOMNIA
     Route: 048
     Dates: end: 20110610
  3. REMICADE [Suspect]
     Route: 042
     Dates: start: 20110602
  4. PENTASA [Suspect]
     Indication: CROHN'S DISEASE
     Route: 048
     Dates: start: 20000805
  5. IMURAN [Suspect]
     Indication: CROHN'S DISEASE
     Route: 048
     Dates: start: 20051228, end: 20101129
  6. DORAL [Concomitant]
     Indication: INSOMNIA
     Route: 048
     Dates: start: 20110407, end: 20110610
  7. REMICADE [Suspect]
     Indication: CROHN'S DISEASE
     Route: 042
     Dates: start: 20060110
  8. PENTASA [Suspect]
     Route: 048
     Dates: start: 20060110, end: 20110627
  9. NEOPHAGEN C [Concomitant]
     Indication: LIVER DISORDER
     Route: 042
     Dates: start: 20110610, end: 20110610
  10. POSTERISAN [Concomitant]
     Indication: CROHN'S DISEASE
     Dosage: ROUTE OF ADMINISTRATION ^OD^

REACTIONS (2)
  - LYMPHOMA [None]
  - PYREXIA [None]
